FAERS Safety Report 8404216 (Version 3)
Quarter: 2014Q1

REPORT INFORMATION
  Report Type: Spontaneous
  Country: US (occurrence: None)
  Receive Date: 20111227
  Receipt Date: 20130724
  Transmission Date: 20141002
  Serious: No
  Sender: FDA-Public Use
  Company Number: PHEH2011US03691

PATIENT
  Age: 41 Year
  Sex: Female
  Weight: 61.2 kg

DRUGS (4)
  1. GILENYA [Suspect]
     Dosage: 0.5 MG, QD, ORAL
     Route: 048
  2. CLARINEX-D (DESLORATADINE, PSEUDOEPHEDRINE SULFATE) [Concomitant]
  3. MOTRIN [Concomitant]
  4. LYRICA (PREGABALIN) [Concomitant]

REACTIONS (5)
  - Musculoskeletal pain [None]
  - Arthralgia [None]
  - Hypertension [None]
  - Cardiac disorder [None]
  - Dyspnoea [None]
